FAERS Safety Report 4484479-5 (Version None)
Quarter: 2004Q4

REPORT INFORMATION
  Report Type: 
  Country: None (occurrence: None)
  Receive Date: 20041025
  Receipt Date: 20040916
  Transmission Date: 20050328
  Serious: Yes (Hospitalization)
  Sender: FDA-Public Use
  Company Number: PHEH2004US10011

PATIENT
  Sex: Male

DRUGS (5)
  1. DIOVAN [Suspect]
     Dosage: UNK
     Route: 048
     Dates: start: 20040514
  2. FLOMAX [Concomitant]
  3. AMBIEN [Concomitant]
  4. ATENOLOL [Concomitant]
  5. DETROL [Concomitant]

REACTIONS (27)
  - ABDOMINAL TENDERNESS [None]
  - ANAEMIA [None]
  - ANURIA [None]
  - ASTHENIA [None]
  - BILATERAL HYDRONEPHROSIS [None]
  - BLOOD CREATININE INCREASED [None]
  - BLOOD SODIUM DECREASED [None]
  - BLOOD UREA INCREASED [None]
  - CONSTIPATION [None]
  - DIABETES MELLITUS [None]
  - DIALYSIS [None]
  - FEELING ABNORMAL [None]
  - FLANK PAIN [None]
  - HAEMATOCRIT DECREASED [None]
  - HAEMOGLOBIN DECREASED [None]
  - HYPERTENSION [None]
  - NAUSEA [None]
  - OBSTRUCTION [None]
  - OEDEMA PERIPHERAL [None]
  - PCO2 DECREASED [None]
  - RALES [None]
  - RENAL FAILURE ACUTE [None]
  - RENAL TUBULAR NECROSIS [None]
  - TENDERNESS [None]
  - TESTICULAR DISORDER [None]
  - TESTICULAR PAIN [None]
  - VOMITING [None]
